FAERS Safety Report 6942894-1 (Version None)
Quarter: 2010Q3

REPORT INFORMATION
  Report Type: 
  Country: None (occurrence: None)
  Receive Date: 20100826
  Receipt Date: 20100817
  Transmission Date: 20110219
  Serious: Yes (Hospitalization)
  Sender: FDA-Public Use
  Company Number: DE-ROCHE-722503

PATIENT
  Sex: Male
  Weight: 80 kg

DRUGS (3)
  1. BEVACIZUMAB [Suspect]
     Indication: RECTAL CANCER METASTATIC
     Dosage: LAST APPLICATION PRIOR TO THE EVENTS ON 6 AUG 2010 (4TH CYCLE)
     Route: 042
     Dates: end: 20100806
  2. CAPECITABINE [Suspect]
     Indication: RECTAL CANCER METASTATIC
     Route: 048
     Dates: start: 20100806, end: 20100816
  3. MARCUMAR [Concomitant]
     Indication: ATRIAL FIBRILLATION

REACTIONS (5)
  - FATIGUE [None]
  - HYPERTENSION [None]
  - MUSCULAR WEAKNESS [None]
  - MYASTHENIA GRAVIS [None]
  - SPEECH DISORDER [None]
